FAERS Safety Report 4713064-2 (Version None)
Quarter: 2005Q3

REPORT INFORMATION
  Report Type: 
  Country: None (occurrence: None)
  Receive Date: 20050711
  Receipt Date: 20050630
  Transmission Date: 20060218
  Serious: Yes (Hospitalization, Other)
  Sender: FDA-Public Use
  Company Number: HQWYE952501JUL05

PATIENT
  Age: 65 Year
  Sex: Male

DRUGS (3)
  1. PEPTAZOL (PANTOPRAZOLE, TABLET, DELAYED RELEASE) [Suspect]
     Indication: GASTROOESOPHAGEAL REFLUX DISEASE
     Dosage: 20 MG 1X PER 1 DAY ORAL
     Route: 048
     Dates: start: 20050101, end: 20050529
  2. PEPTAZOL (PANTOPRAZOLE, TABLET, DELAYED RELEASE) [Suspect]
     Indication: OESOPHAGITIS
     Dosage: 20 MG 1X PER 1 DAY ORAL
     Route: 048
     Dates: start: 20050101, end: 20050529
  3. INDAPAMIDE [Concomitant]

REACTIONS (1)
  - FORMICATION [None]
